FAERS Safety Report 7174126 (Version 2)
Quarter: 2013Q1

REPORT INFORMATION
  Report Type: Spontaneous
  Country: TR (occurrence: None)
  Receive Date: 20091029
  Receipt Date: 20130228
  Transmission Date: 20140127
  Serious: Yes (Other)
  Sender: FDA-Public Use
  Company Number: AUR-APL-2009-00921

PATIENT
  Age: 15 Year
  Sex: Female

DRUGS (1)
  1. FLUOXETINE (FLUOXETINE) [Suspect]

REACTIONS (5)
  - BRUXISM [None]
  - JOINT STIFFNESS [None]
  - PAIN IN JAW [None]
  - TOOTH FRACTURE [None]
  - MOVEMENT DISORDER [None]
